FAERS Safety Report 15915095 (Version 1)
Quarter: 2019Q1

REPORT INFORMATION
  Report Type: Spontaneous
  Country: US (occurrence: US)
  Receive Date: 20190111
  Receipt Date: 20190111
  Transmission Date: 20190417
  Serious: Yes (Disabling)
  Sender: FDA-Public Use
  Company Number: None

PATIENT
  Age: 58 Year
  Sex: Female
  Weight: 62.14 kg

DRUGS (7)
  1. DORZOLAMIDE [Concomitant]
     Active Substance: DORZOLAMIDE
  2. TURMERIC [Concomitant]
     Active Substance: HERBALS\TURMERIC
  3. PRIOBIOTICS [Concomitant]
  4. RANITIDINE. [Concomitant]
     Active Substance: RANITIDINE
  5. LORATADINE. [Concomitant]
     Active Substance: LORATADINE
  6. CIPROFLOXACIN 500MG TABS [Suspect]
     Active Substance: CIPROFLOXACIN
     Indication: URINARY TRACT INFECTION
     Dosage: ?          QUANTITY:500 2 PILLS;?
     Route: 048
     Dates: start: 20180705, end: 20180711
  7. CALCIUM [Concomitant]
     Active Substance: CALCIUM

REACTIONS (2)
  - Paraesthesia [None]
  - Burning sensation [None]

NARRATIVE: CASE EVENT DATE: 20180707
